FAERS Safety Report 4815002-0 (Version None)
Quarter: 2005Q4

REPORT INFORMATION
  Report Type: 
  Country: None (occurrence: None)
  Receive Date: 20051026
  Receipt Date: 20051011
  Transmission Date: 20060501
  Serious: Yes (Death, Hospitalization)
  Sender: FDA-Public Use
  Company Number: JP_051007814

PATIENT
  Age: 66 Year
  Sex: Male

DRUGS (2)
  1. GEMZAR [Suspect]
     Indication: NON-SMALL CELL LUNG CANCER
     Dates: start: 20050927, end: 20051004
  2. VINORELBINE TARTRATE [Concomitant]

REACTIONS (2)
  - CARDIAC TAMPONADE [None]
  - PANCREATITIS [None]
